FAERS Safety Report 23571553 (Version 1)
Quarter: 2024Q1

REPORT INFORMATION
  Report Type: Spontaneous
  Country: US (occurrence: US)
  Receive Date: 20240227
  Receipt Date: 20240227
  Transmission Date: 20240410
  Serious: No
  Sender: FDA-Public Use
  Company Number: US-ABBVIE-5654154

PATIENT
  Sex: Female
  Weight: 88.45 kg

DRUGS (4)
  1. RINVOQ [Suspect]
     Active Substance: UPADACITINIB
     Indication: Dermatitis atopic
     Dosage: 1 TABLET FORM STRENGTH: 15MG
     Route: 048
     Dates: start: 202210
  2. CLOBETASOL [Concomitant]
     Active Substance: CLOBETASOL
     Indication: Dermatitis atopic
     Dosage: FORM STRENGTH: 0.05%
     Route: 061
  3. VTAMA [Concomitant]
     Active Substance: TAPINAROF
     Indication: Dermatitis atopic
     Dosage: FORM STRENGTH: 1%
     Route: 061
  4. CRESTOR [Concomitant]
     Active Substance: ROSUVASTATIN CALCIUM
     Indication: Hyperlipidaemia
     Dosage: FORM STRENGTH: 10MG

REACTIONS (1)
  - Hepatomegaly [Unknown]
